FAERS Safety Report 7449987-3 (Version None)
Quarter: 2011Q2

REPORT INFORMATION
  Report Type: 
  Country: None (occurrence: None)
  Receive Date: 20110502
  Receipt Date: 20110408
  Transmission Date: 20111010
  Serious: Yes (Hospitalization, Other)
  Sender: FDA-Public Use
  Company Number: US-BAYER-200941356GPV

PATIENT
  Age: 62 Year
  Sex: Male
  Weight: 62.4 kg

DRUGS (9)
  1. SPIRONOLACTONE [Concomitant]
     Indication: ASCITES
     Route: 048
     Dates: start: 20090115, end: 20090209
  2. PYRIDOXINE [Concomitant]
     Indication: PALMAR-PLANTAR ERYTHRODYSAESTHESIA SYNDROME
     Dates: start: 20081125, end: 20090216
  3. AUGMENTIN [Concomitant]
     Dates: start: 20090112, end: 20090119
  4. HYDROCORTISONE [Concomitant]
     Indication: PALMAR-PLANTAR ERYTHRODYSAESTHESIA SYNDROME
     Dates: start: 20081125, end: 20090216
  5. AMLODIPINE [Concomitant]
     Indication: HYPERTENSION
     Dosage: 10 MG (DAILY DOSE), ,
     Dates: start: 20081209, end: 20090120
  6. POTASSIUM CHLORIDE [Concomitant]
     Indication: HYPOKALAEMIA
     Dates: start: 20081209, end: 20090111
  7. CALCIUM [Concomitant]
     Indication: HYPOCALCAEMIA
     Dates: start: 20090106, end: 20090113
  8. SORAFENIB (RAF KINASE INHIBITOR) [Suspect]
     Indication: HEPATIC NEOPLASM MALIGNANT
     Route: 048
     Dates: start: 20081112, end: 20090106
  9. SORAFENIB (RAF KINASE INHIBITOR) [Suspect]
     Route: 048
     Dates: start: 20081217, end: 20090216

REACTIONS (3)
  - GASTROINTESTINAL HAEMORRHAGE [None]
  - HEPATIC FAILURE [None]
  - HEPATIC NEOPLASM MALIGNANT [None]
